FAERS Safety Report 9742618 (Version 2)
Quarter: 2015Q3

REPORT INFORMATION
  Report Type: Spontaneous
  Country: US (occurrence: US)
  Receive Date: 20131210
  Receipt Date: 20150804
  Transmission Date: 20151125
  Serious: No
  Sender: FDA-Public Use
  Company Number: US-GILEAD-2009-0024783

PATIENT
  Age: 57 Year
  Sex: Female
  Weight: 58.06 kg

DRUGS (3)
  1. CITRACAL +D [Concomitant]
  2. LETAIRIS [Suspect]
     Active Substance: AMBRISENTAN
     Indication: PULMONARY ARTERIAL HYPERTENSION
     Route: 048
     Dates: start: 20080402
  3. COMPLETE MULTIVITAMINS [Concomitant]

REACTIONS (3)
  - Red blood cell count decreased [Unknown]
  - Haematochezia [Unknown]
  - Fatigue [Unknown]
